FAERS Safety Report 11500695 (Version 1)
Quarter: 2015Q3

REPORT INFORMATION
  Report Type: Spontaneous
  Country: US (occurrence: None)
  Receive Date: 20150911
  Receipt Date: 20150911
  Transmission Date: 20151125
  Serious: Yes (Other)
  Sender: FDA-Public Use
  Company Number: None

PATIENT
  Age: 9 Year
  Sex: Female
  Weight: 69.4 kg

DRUGS (4)
  1. CETRIZINE [Suspect]
     Active Substance: CETIRIZINE HYDROCHLORIDE
     Indication: MULTIPLE ALLERGIES
     Dosage: 1 PILL AT BEDTIME
     Route: 048
     Dates: start: 20150807, end: 20150818
  2. PATADAY [Concomitant]
     Active Substance: OLOPATADINE HYDROCHLORIDE
  3. KIDS BENEDRYL [Concomitant]
  4. PROAIR HFA [Concomitant]
     Active Substance: ALBUTEROL SULFATE

REACTIONS (6)
  - Feeling abnormal [None]
  - Headache [None]
  - Gait disturbance [None]
  - Somnolence [None]
  - Skin disorder [None]
  - Skin discolouration [None]

NARRATIVE: CASE EVENT DATE: 20150818
